FAERS Safety Report 6907141-5 (Version None)
Quarter: 2010Q3

REPORT INFORMATION
  Report Type: 
  Country: None (occurrence: None)
  Receive Date: 20100804
  Receipt Date: 20090219
  Transmission Date: 20110219
  Serious: Yes (Death)
  Sender: FDA-Public Use
  Company Number: AU-PFIZER INC-2008051078

PATIENT
  Sex: Male
  Weight: 72 kg

DRUGS (19)
  1. MARAVIROC [Suspect]
     Indication: HIV INFECTION
     Dosage: 150 MG, 2X/DAY
     Route: 048
     Dates: start: 20050901, end: 20081221
  2. COMBIVIR [Concomitant]
     Route: 048
     Dates: start: 20050101
  3. TENOFOVIR [Concomitant]
     Route: 048
     Dates: start: 20050101
  4. EFAVIRENZ [Concomitant]
     Route: 048
     Dates: start: 20050101
  5. ATAZANAVIR [Concomitant]
     Route: 048
     Dates: start: 20050101
  6. FISH OIL [Concomitant]
     Route: 048
     Dates: start: 20030101
  7. ACETAMINOPHEN [Concomitant]
     Route: 048
     Dates: start: 19900101
  8. VALACYCLOVIR [Concomitant]
     Route: 048
     Dates: start: 20020101
  9. LATANOPROST [Concomitant]
     Dates: start: 20080101
  10. METOCLOPRAMIDE [Concomitant]
     Route: 048
  11. EFUDEX [Concomitant]
     Route: 061
     Dates: start: 20060101
  12. CELESTONE [Concomitant]
     Route: 061
     Dates: start: 20080101
  13. OXAZEPAM [Concomitant]
     Route: 048
     Dates: start: 20071001
  14. RANITIDINE [Concomitant]
     Route: 048
     Dates: start: 20010101
  15. ENDONE [Concomitant]
     Route: 048
     Dates: start: 20080527
  16. OXYCONTIN [Concomitant]
     Dates: start: 20080616
  17. OXYCODONE [Concomitant]
     Dates: start: 20080616
  18. IBUPROFEN [Concomitant]
     Dates: start: 20080616
  19. CLEXANE [Concomitant]

REACTIONS (1)
  - SQUAMOUS CELL CARCINOMA [None]
